FAERS Safety Report 13567274 (Version 4)
Quarter: 2018Q1

REPORT INFORMATION
  Report Type: Report from Study
  Country: US (occurrence: US)
  Receive Date: 20170522
  Receipt Date: 20180329
  Transmission Date: 20180508
  Serious: Yes (Other)
  Sender: FDA-Public Use
  Company Number: US-MALLINCKRODT-T201702075

PATIENT
  Sex: Female

DRUGS (2)
  1. UVADEX [Suspect]
     Active Substance: METHOXSALEN
     Dosage: UNKNOWN
     Route: 042
     Dates: start: 200801
  2. UVADEX [Suspect]
     Active Substance: METHOXSALEN
     Indication: MYCOSIS FUNGOIDES
     Dosage: UNKNOWN
     Route: 057
     Dates: start: 200801

REACTIONS (14)
  - Contusion [Unknown]
  - Injection site haemorrhage [Unknown]
  - Non-Hodgkin^s lymphoma [Unknown]
  - White blood cell count decreased [Unknown]
  - Skin exfoliation [Unknown]
  - Fatigue [Unknown]
  - Hodgkin^s disease [Unknown]
  - Haemorrhage [Unknown]
  - Photosensitivity reaction [Unknown]
  - Injection site bruising [Unknown]
  - Hypotension [Unknown]
  - Ocular hyperaemia [Unknown]
  - Suture rupture [Unknown]
  - Injection site rash [Unknown]
